FAERS Safety Report 10458703 (Version 1)
Quarter: 2014Q3

REPORT INFORMATION
  Report Type: Spontaneous
  Country: DE (occurrence: DE)
  Receive Date: 20140917
  Receipt Date: 20140917
  Transmission Date: 20150326
  Serious: Yes (Other)
  Sender: FDA-Public Use
  Company Number: DE-JNJFOC-20140908700

PATIENT
  Age: 31 Year
  Sex: Female

DRUGS (3)
  1. QUETIAPINE [Suspect]
     Active Substance: QUETIAPINE
     Indication: SUICIDE ATTEMPT
     Route: 048
     Dates: start: 20140910, end: 20140910
  2. CITALOPRAM [Suspect]
     Active Substance: CITALOPRAM HYDROBROMIDE
     Indication: SUICIDE ATTEMPT
     Route: 048
     Dates: start: 20140910, end: 20140910
  3. RISPERDAL [Suspect]
     Active Substance: RISPERIDONE
     Indication: SUICIDE ATTEMPT
     Route: 048
     Dates: start: 20140910, end: 20140910

REACTIONS (3)
  - Somnolence [Unknown]
  - Intentional overdose [Unknown]
  - Suicide attempt [Unknown]

NARRATIVE: CASE EVENT DATE: 20140910
